FAERS Safety Report 4509951-0 (Version None)
Quarter: 2004Q4

REPORT INFORMATION
  Report Type: 
  Country: None (occurrence: None)
  Receive Date: 20041124
  Receipt Date: 20041118
  Transmission Date: 20050328
  Serious: Yes (Hospitalization)
  Sender: FDA-Public Use
  Company Number: US-JNJFOC-20040500206

PATIENT
  Age: 70 Year
  Sex: Female

DRUGS (13)
  1. DURAGESIC [Suspect]
     Route: 062
  2. DURAGESIC [Suspect]
     Route: 062
  3. DURAGESIC [Suspect]
     Route: 062
  4. GLUCOPHAGE [Concomitant]
     Route: 049
     Dates: start: 19990101
  5. GLIPZIDE [Concomitant]
     Route: 049
     Dates: start: 19990101
  6. ZESTRIL [Concomitant]
     Indication: BLOOD PRESSURE
     Route: 049
     Dates: start: 19990101
  7. LIPITOR [Concomitant]
     Route: 049
     Dates: start: 20030601
  8. PLAVIX [Concomitant]
     Indication: ANTICOAGULANT THERAPY
     Route: 049
     Dates: start: 20020101
  9. SOMA [Concomitant]
     Indication: MUSCLE RELAXANT THERAPY
     Route: 049
     Dates: start: 19990101
  10. METAFORMIN [Concomitant]
  11. FOLIC ACID [Concomitant]
  12. SYNTHROID [Concomitant]
  13. ASPIRIN [Concomitant]

REACTIONS (2)
  - CARDIAC FAILURE CONGESTIVE [None]
  - INADEQUATE ANALGESIA [None]
